FAERS Safety Report 4330692-7 (Version None)
Quarter: 2004Q2

REPORT INFORMATION
  Report Type: 
  Country: None (occurrence: None)
  Receive Date: 20040401
  Receipt Date: 20040401
  Transmission Date: 20050107
  Serious: Yes (Hospitalization)
  Sender: FDA-Public Use
  Company Number: None

PATIENT
  Age: 64 Year
  Sex: Male
  Weight: 82.3 kg

DRUGS (20)
  1. VINCRISTINE [Suspect]
     Indication: NON-HODGKIN'S LYMPHOMA
     Dosage: 2 MG IV
     Route: 042
     Dates: start: 20031022, end: 20031022
  2. DOXORUBICIN HCL [Suspect]
     Dosage: 100 MG IV
     Route: 042
     Dates: start: 20031022, end: 20031022
  3. RITUXIMAB [Suspect]
     Indication: NON-HODGKIN'S LYMPHOMA
     Dosage: 750 MG IV
     Route: 042
     Dates: start: 20031022, end: 20031022
  4. CYCLOPHOSPHAMIDE [Suspect]
     Indication: NON-HODGKIN'S LYMPHOMA
     Dosage: 1500 MG IV
     Route: 042
     Dates: start: 20031022, end: 20031022
  5. ONDANSETRON HCL [Concomitant]
  6. FLUTICASONE PROP NASAL INH [Concomitant]
  7. PREDNISONE [Concomitant]
  8. FERROUS SO4 [Concomitant]
  9. PROCHLORPERAZINE MALEATE [Concomitant]
  10. RABEPRAZOLE NA [Concomitant]
  11. PREDNISONE [Concomitant]
  12. FLUTICASONE NASA [Concomitant]
  13. FERROUS SULFATE TAB [Concomitant]
  14. ALLOPURINOL [Concomitant]
  15. OXYMETAZOLINE NASAL [Concomitant]
  16. PROCHLORPERAZINE [Concomitant]
  17. OXYCODONE [Concomitant]
  18. ACETAMINOPHEN [Concomitant]
  19. FUROSEMIDE [Concomitant]
  20. AMPICILLIN SODIUM/SULBACTAM SODIUM [Concomitant]

REACTIONS (2)
  - PNEUMONIA [None]
  - PYREXIA [None]
